FAERS Safety Report 15624585 (Version 2)
Quarter: 2019Q1

REPORT INFORMATION
  Report Type: Report from Study
  Country: US (occurrence: US)
  Receive Date: 20181116
  Receipt Date: 20190301
  Transmission Date: 20190417
  Serious: Yes (Other)
  Sender: FDA-Public Use
  Company Number: US-ASTELLAS-2018US048811

PATIENT
  Age: 81 Year
  Sex: Male

DRUGS (1)
  1. ENZALUTAMIDE [Suspect]
     Active Substance: ENZALUTAMIDE
     Indication: PROSTATE CANCER
     Route: 048
     Dates: start: 201602

REACTIONS (3)
  - Back injury [Not Recovered/Not Resolved]
  - Prostatic specific antigen increased [Unknown]
  - Spinal disorder [Unknown]

NARRATIVE: CASE EVENT DATE: 201811
